FAERS Safety Report 14311005 (Version 1)
Quarter: 2017Q4

REPORT INFORMATION
  Report Type: Spontaneous
  Country: US (occurrence: US)
  Receive Date: 20171221
  Receipt Date: 20171221
  Transmission Date: 20180321
  Serious: No
  Sender: FDA-Public Use
  Company Number: US-SA-2017SA020829

PATIENT
  Age: 60 Year
  Sex: Male
  Weight: 65.77 kg

DRUGS (8)
  1. PLAVIX [Suspect]
     Active Substance: CLOPIDOGREL BISULFATE
     Indication: STENT PLACEMENT
     Route: 065
     Dates: start: 201701
  2. ASPIRIN. [Concomitant]
     Active Substance: ASPIRIN
  3. NEXIUM [Concomitant]
     Active Substance: ESOMEPRAZOLE MAGNESIUM
  4. LIPITOR [Concomitant]
     Active Substance: ATORVASTATIN CALCIUM
  5. LISINOPRIL. [Concomitant]
     Active Substance: LISINOPRIL
  6. ZANTAC [Concomitant]
     Active Substance: RANITIDINE HYDROCHLORIDE
  7. TOPROL XL [Concomitant]
     Active Substance: METOPROLOL SUCCINATE
  8. BRILINTA [Concomitant]
     Active Substance: TICAGRELOR
     Dates: start: 201612, end: 20170120

REACTIONS (1)
  - Gastrooesophageal reflux disease [Unknown]
